FAERS Safety Report 20289939 (Version 2)
Quarter: 2022Q1

REPORT INFORMATION
  Report Type: Spontaneous
  Country: RS (occurrence: RS)
  Receive Date: 20220104
  Receipt Date: 20220124
  Transmission Date: 20220424
  Serious: Yes (Life-Threatening, Other)
  Sender: FDA-Public Use
  Company Number: RS-AMGEN-SRBSP2021206506

PATIENT
  Age: 86 Year
  Sex: Female
  Weight: 63 kg

DRUGS (9)
  1. PROLIA [Suspect]
     Active Substance: DENOSUMAB
     Indication: Osteoporosis
     Dosage: 60 MILLIGRAM
     Route: 065
     Dates: start: 20211223
  2. PROPAFEN [PROPAFENONE] [Concomitant]
     Indication: Cardiac disorder
     Dosage: 150 MILLIGRAM, BID
  3. PREXANIL COMBI HD [Concomitant]
     Indication: Cardiac disorder
     Dosage: 10+2.5 MILLIGRAM, QD
  4. MOLSIDOMINE [Concomitant]
     Active Substance: MOLSIDOMINE
     Indication: Cardiac disorder
     Dosage: 2 MILLIGRAM, BID
  5. TORSEMIDE [Concomitant]
     Active Substance: TORSEMIDE
     Indication: Cardiac disorder
     Dosage: 2.5 MILLIGRAM, BID
  6. ASPIRIN [Concomitant]
     Active Substance: ASPIRIN
     Indication: Cardiac disorder
     Dosage: 75 MILLIGRAM, QD
  7. ROSUHOL [Concomitant]
     Indication: Cardiac disorder
     Dosage: 10 MILLIGRAM, QD
  8. BROMAZEPAM [Concomitant]
     Active Substance: BROMAZEPAM
     Indication: Insomnia
     Dosage: 3 MILLIGRAM, AS NECESSARY
  9. LEVOTHYROXINE SODIUM [Concomitant]
     Active Substance: LEVOTHYROXINE SODIUM
     Dosage: 25 MILLIGRAM, QOD

REACTIONS (1)
  - Blood urine present [Recovered/Resolved]

NARRATIVE: CASE EVENT DATE: 20211224
